FAERS Safety Report 4354386-7 (Version None)
Quarter: 2004Q2

REPORT INFORMATION
  Report Type: 
  Country: None (occurrence: None)
  Receive Date: 20040503
  Receipt Date: 20040305
  Transmission Date: 20050107
  Serious: Yes (Other)
  Sender: FDA-Public Use
  Company Number: PHEH2004US02674

PATIENT
  Age: 62 Year
  Sex: Female
  Weight: 79.4 kg

DRUGS (3)
  1. DIOVAN HCT [Suspect]
     Indication: HYPERTENSION
     Dosage: 80 MG VALS/12.5 MG HCT, IN AM, ORAL
     Route: 048
     Dates: start: 20010201
  2. DIOVAN [Suspect]
     Indication: HYPERTENSION
     Dosage: 160 MG AT NIGHT, ORAL
     Route: 048
     Dates: start: 20010201
  3. CALCIUM [Concomitant]

REACTIONS (3)
  - BLOOD PRESSURE ABNORMAL [None]
  - OEDEMA PERIPHERAL [None]
  - RASH PRURITIC [None]
